FAERS Safety Report 8894920 (Version 3)
Quarter: 2013Q1

REPORT INFORMATION
  Report Type: Report from Study
  Country: US (occurrence: US)
  Receive Date: 20121108
  Receipt Date: 20130228
  Transmission Date: 20140127
  Serious: Yes (Death, Hospitalization, Other)
  Sender: FDA-Public Use
  Company Number: US-ABBOTT-12P-163-1004487-00

PATIENT
  Age: 63 None
  Sex: Male

DRUGS (3)
  1. HUMIRA PEN [Suspect]
     Indication: RHEUMATOID ARTHRITIS
     Dates: start: 201202, end: 201205
  2. HUMIRA PEN [Suspect]
  3. METHOTREXATE [Concomitant]
     Indication: RHEUMATOID ARTHRITIS

REACTIONS (7)
  - Tonsil cancer [Fatal]
  - Pneumonia aspiration [Fatal]
  - Arthritis bacterial [Recovered/Resolved]
  - Lip and/or oral cavity cancer [Unknown]
  - Throat cancer [Unknown]
  - Joint effusion [Recovered/Resolved]
  - Sepsis [Fatal]
